FAERS Safety Report 17695577 (Version 2)
Quarter: 2020Q2

REPORT INFORMATION
  Report Type: Spontaneous
  Country: US (occurrence: US)
  Receive Date: 20200422
  Receipt Date: 20200429
  Transmission Date: 20200714
  Serious: Yes (Hospitalization, Other)
  Sender: FDA-Public Use
  Company Number: US-PURDUE PHARMA-USA-2020-0151578

PATIENT
  Sex: Female

DRUGS (1)
  1. OXYCONTIN [Suspect]
     Active Substance: OXYCODONE HYDROCHLORIDE
     Indication: BACK PAIN
     Dosage: UNK UNK, TID
     Route: 048
     Dates: start: 2005, end: 2018

REACTIONS (8)
  - Drug dependence [Not Recovered/Not Resolved]
  - Fall [Unknown]
  - Feeling abnormal [Unknown]
  - Quality of life decreased [Unknown]
  - Spinal fracture [Unknown]
  - Off label use [Recovered/Resolved]
  - Gait inability [Unknown]
  - Personality change [Unknown]

NARRATIVE: CASE EVENT DATE: 2005
